FAERS Safety Report 5370514-9 (Version None)
Quarter: 2007Q2

REPORT INFORMATION
  Report Type: 
  Country: None (occurrence: None)
  Receive Date: 20070626
  Receipt Date: 20070619
  Transmission Date: 20071010
  Serious: Yes (Other)
  Sender: FDA-Public Use
  Company Number: US-ASTRAZENECA-2007UW14663

PATIENT
  Age: 90 Year
  Sex: Male

DRUGS (9)
  1. NEXIUM [Suspect]
     Indication: ULCER
     Route: 048
     Dates: start: 20070213
  2. ALLOPURINOL [Concomitant]
  3. CAPTOPRIL [Concomitant]
  4. CITALOPRAM HYDROBROMIDE [Concomitant]
  5. COREG [Concomitant]
  6. CRESTOR [Concomitant]
  7. FUROSEMIDE [Concomitant]
  8. POTASSIUM ACETATE [Concomitant]
  9. PROPOXY/NAPA [Concomitant]

REACTIONS (4)
  - ABNORMAL BEHAVIOUR [None]
  - CARDIAC PACEMAKER INSERTION [None]
  - DEPRESSED MOOD [None]
  - OEDEMA PERIPHERAL [None]
